FAERS Safety Report 7065841-3 (Version None)
Quarter: 2010Q4

REPORT INFORMATION
  Report Type: 
  Country: None (occurrence: None)
  Receive Date: 20101027
  Receipt Date: 20101018
  Transmission Date: 20110411
  Serious: Yes (Other)
  Sender: FDA-Public Use
  Company Number: US-ABBOTT-10P-163-0679253-00

PATIENT
  Sex: Male
  Weight: 99.88 kg

DRUGS (3)
  1. HUMIRA [Suspect]
     Indication: PSORIASIS
     Dates: start: 20090101
  2. METOPROLOL [Concomitant]
     Indication: BLOOD PRESSURE
  3. PREDNISONE [Concomitant]
     Indication: PRODUCT USED FOR UNKNOWN INDICATION
     Dosage: 1/2 TAB QOD

REACTIONS (12)
  - BLISTER [None]
  - BRONCHITIS [None]
  - BURNING SENSATION [None]
  - INCREASED UPPER AIRWAY SECRETION [None]
  - INCREASED VISCOSITY OF BRONCHIAL SECRETION [None]
  - LIVER FUNCTION TEST ABNORMAL [None]
  - LUNG NEOPLASM [None]
  - MYCOBACTERIUM AVIUM COMPLEX INFECTION [None]
  - PAIN [None]
  - PEMPHIGUS [None]
  - PULMONARY FIBROSIS [None]
  - SPUTUM DISCOLOURED [None]
